FAERS Safety Report 12978745 (Version 2)
Quarter: 2017Q1

REPORT INFORMATION
  Report Type: Spontaneous
  Country: FR (occurrence: FR)
  Receive Date: 20161128
  Receipt Date: 20170120
  Transmission Date: 20170428
  Serious: Yes (Hospitalization)
  Sender: FDA-Public Use
  Company Number: FR-JNJFOC-20161125656

PATIENT
  Age: 65 Year
  Sex: Female

DRUGS (14)
  1. CONTRAMAL L.P [Suspect]
     Active Substance: TRAMADOL HYDROCHLORIDE
     Indication: PRODUCT USED FOR UNKNOWN INDICATION
     Route: 048
     Dates: start: 20161002, end: 20161017
  2. MESNA. [Concomitant]
     Active Substance: MESNA
     Dosage: ON DAY 2
     Route: 065
  3. CARBOPLATIN. [Concomitant]
     Active Substance: CARBOPLATIN
     Indication: NEOPLASM MALIGNANT
     Route: 065
     Dates: start: 20160913
  4. ETOPOSIDE. [Concomitant]
     Active Substance: ETOPOSIDE
     Indication: NEOPLASM MALIGNANT
     Dosage: ON DAY 1, 147 MG AT DAY 1, DAY 2 AND CANCELLED AT DAY 3
     Route: 065
     Dates: start: 20161028
  5. VALACICLOVIR [Suspect]
     Active Substance: VALACYCLOVIR HYDROCHLORIDE
     Indication: PRODUCT USED FOR UNKNOWN INDICATION
     Route: 048
     Dates: start: 20161001, end: 20161020
  6. PREDNISONE. [Concomitant]
     Active Substance: PREDNISONE
     Indication: NEOPLASM MALIGNANT
     Route: 065
     Dates: start: 2015, end: 201605
  7. ETOPOSIDE. [Concomitant]
     Active Substance: ETOPOSIDE
     Indication: NEOPLASM MALIGNANT
     Route: 065
     Dates: start: 20160913
  8. IFOSFAMIDE. [Concomitant]
     Active Substance: IFOSFAMIDE
     Indication: NEOPLASM MALIGNANT
     Route: 065
     Dates: start: 20160913
  9. CYCLOPHOSPHAMIDE. [Concomitant]
     Active Substance: CYCLOPHOSPHAMIDE
     Indication: NEOPLASM MALIGNANT
     Route: 065
     Dates: start: 2015, end: 20160809
  10. CIPROFLOXACIN. [Suspect]
     Active Substance: CIPROFLOXACIN
     Indication: EAR INFECTION
     Route: 048
     Dates: start: 20161014, end: 20161019
  11. IFOSFAMIDE. [Concomitant]
     Active Substance: IFOSFAMIDE
     Indication: NEOPLASM MALIGNANT
     Dosage: 7350 GRAMS
     Route: 065
     Dates: start: 20161028
  12. ONCOVIN [Concomitant]
     Active Substance: VINCRISTINE SULFATE
     Indication: NEOPLASM MALIGNANT
     Route: 065
     Dates: start: 2015, end: 201605
  13. BACTRIM [Suspect]
     Active Substance: SULFAMETHOXAZOLE\TRIMETHOPRIM
     Indication: PRODUCT USED FOR UNKNOWN INDICATION
     Route: 065
     Dates: start: 20161001, end: 20161020
  14. HYDROXYDAUNORUBICIN [Concomitant]
     Active Substance: DOXORUBICIN
     Indication: NEOPLASM MALIGNANT
     Route: 065
     Dates: start: 2015, end: 201605

REACTIONS (3)
  - Hallucinations, mixed [Recovered/Resolved]
  - Confusional state [Recovered/Resolved]
  - Disorientation [Recovered/Resolved]

NARRATIVE: CASE EVENT DATE: 20161017
